FAERS Safety Report 11082301 (Version 1)
Quarter: 2015Q2

REPORT INFORMATION
  Report Type: Spontaneous
  Country: DE (occurrence: None)
  Receive Date: 20150428
  Receipt Date: 20150428
  Transmission Date: 20150821
  Serious: Yes (Other)
  Sender: FDA-Public Use
  Company Number: 2523595-2015-00119

PATIENT
  Age: 41 Year
  Sex: Male
  Weight: 80 kg

DRUGS (1)
  1. UVADEX [Suspect]
     Active Substance: METHOXSALEN
     Indication: GRAFT VERSUS HOST DISEASE
     Dosage: RNP
     Dates: start: 201301, end: 201406

REACTIONS (3)
  - Photopsia [None]
  - Migraine [None]
  - Arthralgia [None]

NARRATIVE: CASE EVENT DATE: 20140606
